FAERS Safety Report 4394996-4 (Version None)
Quarter: 2004Q3

REPORT INFORMATION
  Report Type: 
  Country: None (occurrence: None)
  Receive Date: 20040707
  Receipt Date: 20040624
  Transmission Date: 20050211
  Serious: Yes (Life-Threatening)
  Sender: FDA-Public Use
  Company Number: NL-JNJFOC-20040602735

PATIENT
  Age: 54 Year
  Sex: Male

DRUGS (4)
  1. REMICADE [Suspect]
     Indication: RHEUMATOID ARTHRITIS
     Dosage: 3 MG/KG, 1 IN 8 WEEK, INTRAVENOUS
     Route: 042
     Dates: start: 20030521, end: 20040101
  2. METHOTREXATE [Concomitant]
  3. IDOMETACIN (IDOMETACIN) [Concomitant]
  4. FOLIC ACID [Concomitant]

REACTIONS (2)
  - LUNG SQUAMOUS CELL CARCINOMA STAGE UNSPECIFIED [None]
  - METASTASES TO LYMPH NODES [None]
